FAERS Safety Report 16063093 (Version 1)
Quarter: 2019Q1

REPORT INFORMATION
  Report Type: Spontaneous
  Country: DE (occurrence: DE)
  Receive Date: 20190312
  Receipt Date: 20190312
  Transmission Date: 20190418
  Serious: Yes (Life-Threatening)
  Sender: FDA-Public Use
  Company Number: DE-MYLANLABS-2019M1021522

PATIENT
  Age: 58 Year
  Sex: Female

DRUGS (2)
  1. PIPERACILLIN/TAZOBACTAM [Suspect]
     Active Substance: PIPERACILLIN SODIUM\TAZOBACTAM SODIUM
     Indication: PNEUMONIA
     Dosage: UNK, Q8H (1-1-1)
     Route: 042
     Dates: start: 20180717, end: 20180726
  2. LITHIUM. [Concomitant]
     Active Substance: LITHIUM

REACTIONS (2)
  - Hypernatraemia [Not Recovered/Not Resolved]
  - Polyuria [Recovered/Resolved]

NARRATIVE: CASE EVENT DATE: 20180718
